FAERS Safety Report 5016293-6 (Version None)
Quarter: 2006Q2

REPORT INFORMATION
  Report Type: 
  Country: None (occurrence: None)
  Receive Date: 20060421
  Receipt Date: 20050610
  Transmission Date: 20061013
  Serious: Yes (Other)
  Sender: FDA-Public Use
  Company Number: US-JNJFOC-20050500649

PATIENT
  Age: 78 Year
  Sex: Male
  Weight: 104.3273 kg

DRUGS (1)
  1. VIADUR [Suspect]
     Indication: PROSTATE CANCER
     Dosage: 120 UG, 1 IN 1 DAY; SUBCUTANEOUS
     Route: 058
     Dates: start: 20041208, end: 20050331

REACTIONS (2)
  - NAUSEA [None]
  - WEIGHT DECREASED [None]
